FAERS Safety Report 25373943 (Version 1)
Quarter: 2025Q2

REPORT INFORMATION
  Report Type: Spontaneous
  Country: US (occurrence: US)
  Receive Date: 20250529
  Receipt Date: 20250529
  Transmission Date: 20250716
  Serious: No
  Sender: Haleon PLC
  Company Number: US-HALEON-2244564

PATIENT

DRUGS (1)
  1. TUMS CHEWY DELIGHTS [Suspect]
     Active Substance: CALCIUM CARBONATE
     Indication: Product used for unknown indication

REACTIONS (2)
  - Drug effective for unapproved indication [Unknown]
  - Product use in unapproved indication [Unknown]
